FAERS Safety Report 17027060 (Version 1)
Quarter: 2019Q4

REPORT INFORMATION
  Report Type: Spontaneous
  Country: US (occurrence: US)
  Receive Date: 20191009
  Receipt Date: 20191009
  Transmission Date: 20200122
  Serious: Yes (Other)
  Sender: FDA-Public Use
  Company Number: None

PATIENT
  Age: 63 Year
  Sex: Female
  Weight: 68.04 kg

DRUGS (13)
  1. FEXOFENADINE [Concomitant]
     Active Substance: FEXOFENADINE HYDROCHLORIDE
  2. CRANBERRY. [Concomitant]
     Active Substance: CRANBERRY
  3. #1 ACTIVES TART CHERRY [Concomitant]
  4. MAGNESIUM [Concomitant]
     Active Substance: MAGNESIUM
  5. VITAMIN B12 [Concomitant]
     Active Substance: CYANOCOBALAMIN
  6. VITAMIN D3 [Concomitant]
     Active Substance: CHOLECALCIFEROL
  7. CINNAMON. [Concomitant]
     Active Substance: CINNAMON
  8. ROSUVASTATIN CAL [Concomitant]
  9. ALENDRONATE SODIUM. [Suspect]
     Active Substance: ALENDRONATE SODIUM
     Indication: OSTEOPOROSIS PROPHYLAXIS
     Dosage: ?          QUANTITY:1 DF DOSAGE FORM;?
     Route: 048
     Dates: start: 20190305, end: 20190312
  10. ASPIRIN. [Concomitant]
     Active Substance: ASPIRIN
  11. CALCIUM PLUS VIT D [Concomitant]
  12. COQ10 [Concomitant]
     Active Substance: UBIDECARENONE
  13. COMPLETE MULTIVITAMIN ADULTS 50+ [Concomitant]

REACTIONS (24)
  - Pyrexia [None]
  - Toothache [None]
  - Musculoskeletal pain [None]
  - Arthralgia [None]
  - Muscle spasms [None]
  - Pain [None]
  - Joint swelling [None]
  - Dyspepsia [None]
  - Stomatitis [None]
  - Chest discomfort [None]
  - Gallbladder disorder [None]
  - Myalgia [None]
  - Peripheral swelling [None]
  - Blister [None]
  - Constipation [None]
  - Impaired work ability [None]
  - Back pain [None]
  - Bone disorder [None]
  - Oropharyngeal pain [None]
  - Abdominal pain [None]
  - Headache [None]
  - Pain in jaw [None]
  - Gingival bleeding [None]
  - Swelling face [None]

NARRATIVE: CASE EVENT DATE: 20190312
